FAERS Safety Report 6021896-6 (Version None)
Quarter: 2008Q4

REPORT INFORMATION
  Report Type: 
  Country: None (occurrence: None)
  Receive Date: 20081229
  Receipt Date: 20081224
  Transmission Date: 20090506
  Serious: Yes (Hospitalization)
  Sender: FDA-Public Use
  Company Number: FR-ASTRAZENECA-2008CG01883

PATIENT
  Age: 9 Year
  Sex: Male
  Weight: 30 kg

DRUGS (8)
  1. MOPRAL [Suspect]
     Route: 048
     Dates: start: 20080920, end: 20081011
  2. SALAZOPYRINE [Suspect]
     Indication: OSTEOMYELITIS CHRONIC
     Route: 048
     Dates: start: 20080901
  3. SALAZOPYRINE [Suspect]
     Route: 048
     Dates: start: 20080920, end: 20081011
  4. PROFENID [Suspect]
     Indication: OSTEOMYELITIS CHRONIC
     Route: 048
     Dates: start: 20080901
  5. PROFENID [Suspect]
     Route: 048
     Dates: start: 20080920, end: 20081011
  6. NAPROXEN SODIUM [Concomitant]
     Indication: OSTEOMYELITIS CHRONIC
  7. INDOCIN [Concomitant]
     Indication: OSTEOMYELITIS CHRONIC
  8. CORTICOSTEROIDS [Concomitant]
     Indication: OSTEOMYELITIS CHRONIC
     Dates: start: 20080301

REACTIONS (6)
  - ASTHENIA [None]
  - METABOLIC ACIDOSIS [None]
  - PYREXIA [None]
  - RESPIRATORY ALKALOSIS [None]
  - TACHYPNOEA [None]
  - VOMITING [None]
